FAERS Safety Report 20318540 (Version 3)
Quarter: 2025Q3

REPORT INFORMATION
  Report Type: Spontaneous
  Country: CA (occurrence: CA)
  Receive Date: 20220110
  Receipt Date: 20250801
  Transmission Date: 20251021
  Serious: Yes (Death, Hospitalization, Other)
  Sender: TEVA
  Company Number: CA-TEVA-2021-CA-1996486

PATIENT
  Age: 24 Year
  Sex: Female

DRUGS (3)
  1. GABAPENTIN [Suspect]
     Active Substance: GABAPENTIN
     Indication: Product used for unknown indication
     Route: 048
  2. ACETAMINOPHEN [Suspect]
     Active Substance: ACETAMINOPHEN
     Indication: Product used for unknown indication
     Route: 048
  3. MORPHINE [Suspect]
     Active Substance: MORPHINE
     Indication: Product used for unknown indication
     Route: 048

REACTIONS (19)
  - Brain oedema [Fatal]
  - Endotracheal intubation [Fatal]
  - Hepatic failure [Fatal]
  - Hypoglycaemia [Fatal]
  - Renal replacement therapy [Fatal]
  - Intentional overdose [Fatal]
  - Depressed level of consciousness [Fatal]
  - Hepatic failure [Fatal]
  - Renal replacement therapy [Fatal]
  - Acute hepatic failure [Fatal]
  - Ileus [Fatal]
  - Metabolic acidosis [Fatal]
  - Cerebral haemorrhage [Fatal]
  - Coagulopathy [Fatal]
  - Continuous haemodiafiltration [Fatal]
  - Depressed level of consciousness [Fatal]
  - Diffuse axonal injury [Fatal]
  - Encephalopathy [Fatal]
  - Haemodialysis [Fatal]
